FAERS Safety Report 11074155 (Version 2)
Quarter: 2015Q3

REPORT INFORMATION
  Report Type: Spontaneous
  Country: US (occurrence: None)
  Receive Date: 20150427
  Receipt Date: 20150730
  Transmission Date: 20151125
  Serious: Yes (Other)
  Sender: FDA-Public Use
  Company Number: ADR-2015-00713

PATIENT
  Age: 58 Year
  Sex: Female

DRUGS (1)
  1. BACLOFEN INTRATHECAL [Suspect]
     Active Substance: BACLOFEN
     Indication: MUSCLE SPASTICITY

REACTIONS (15)
  - Cerebrospinal fluid leakage [None]
  - Drug withdrawal syndrome [None]
  - Seizure [None]
  - Medical device site pain [None]
  - Mass [None]
  - Back pain [None]
  - No therapeutic response [None]
  - Activities of daily living impaired [None]
  - Muscle spasticity [None]
  - Impaired driving ability [None]
  - Sleep disorder [None]
  - Pain [None]
  - Device malfunction [None]
  - Disease recurrence [None]
  - Fistula [None]

NARRATIVE: CASE EVENT DATE: 20150223
